FAERS Safety Report 6315392-6 (Version None)
Quarter: 2009Q3

REPORT INFORMATION
  Report Type: 
  Country: None (occurrence: None)
  Receive Date: 20090819
  Receipt Date: 20090814
  Transmission Date: 20100115
  Serious: Yes (Death)
  Sender: FDA-Public Use
  Company Number: US-SANOFI-SYNTHELABO-F01200900768

PATIENT
  Sex: Male
  Weight: 50.8 kg

DRUGS (7)
  1. CETUXIMAB [Suspect]
     Dates: start: 20090806, end: 20090806
  2. DOCETAXEL [Suspect]
     Route: 042
     Dates: start: 20090806, end: 20090806
  3. OXALIPLATIN [Suspect]
     Indication: GASTROOESOPHAGEAL CANCER
     Route: 042
     Dates: start: 20090806, end: 20090806
  4. PROTEIN [Concomitant]
     Route: 048
     Dates: start: 20090723
  5. MEGESTROL ACETATE [Concomitant]
     Route: 048
     Dates: start: 20090723
  6. PRILOSEC [Concomitant]
     Indication: DYSPEPSIA
     Route: 048
     Dates: start: 20090513
  7. FENTANYL [Concomitant]
     Indication: EX-TOBACCO USER
     Route: 061
     Dates: start: 20090723

REACTIONS (1)
  - HYPERMAGNESAEMIA [None]
